FAERS Safety Report 11716122 (Version 2)
Quarter: 2016Q1

REPORT INFORMATION
  Report Type: Report from Study
  Country: ES (occurrence: ES)
  Receive Date: 20151109
  Receipt Date: 20160122
  Transmission Date: 20160525
  Serious: Yes (Other)
  Sender: FDA-Public Use
  Company Number: ES-JNJFOC-20150907255

PATIENT
  Age: 64 Year
  Sex: Female

DRUGS (1)
  1. IBRUTINIB [Suspect]
     Active Substance: IBRUTINIB
     Indication: CHRONIC LYMPHOCYTIC LEUKAEMIA
     Dosage: 3RD LINE (INITIATED AROUND 6 MONTH AGO)
     Route: 048

REACTIONS (2)
  - Panniculitis [Unknown]
  - Erythema nodosum [Unknown]
